FAERS Safety Report 19750402 (Version 1)
Quarter: 2021Q3

REPORT INFORMATION
  Report Type: Spontaneous
  Country: US (occurrence: US)
  Receive Date: 20210826
  Receipt Date: 20210826
  Transmission Date: 20211014
  Serious: Yes (Death)
  Sender: FDA-Public Use
  Company Number: None

PATIENT
  Age: 96 Year
  Sex: Male

DRUGS (5)
  1. METOPROL SUC [Concomitant]
  2. ENTECAVIR. [Suspect]
     Active Substance: ENTECAVIR
     Indication: IMMUNOGLOBULINS ABNORMAL
     Route: 048
     Dates: start: 20200411
  3. DICLOFENAC GEL [Concomitant]
     Active Substance: DICLOFENAC
  4. SERTRALINE [Concomitant]
     Active Substance: SERTRALINE HYDROCHLORIDE
  5. FUROSEMIDE. [Concomitant]
     Active Substance: FUROSEMIDE

REACTIONS (1)
  - Death [None]
